FAERS Safety Report 10283149 (Version 1)
Quarter: 2014Q3

REPORT INFORMATION
  Report Type: Spontaneous
  Country: GB (occurrence: GB)
  Receive Date: 20140708
  Receipt Date: 20140708
  Transmission Date: 20150326
  Serious: Yes (Other)
  Sender: FDA-Public Use
  Company Number: GB-ACCORD-024585

PATIENT
  Sex: Male

DRUGS (1)
  1. QUETIAPINE [Suspect]
     Active Substance: QUETIAPINE
     Indication: PRODUCT USED FOR UNKNOWN INDICATION
     Dosage: 300 MG TABLETS FOR A LEAST 1 WEEK
     Route: 048

REACTIONS (4)
  - Dysgeusia [Unknown]
  - Asthenia [Unknown]
  - Chest pain [Unknown]
  - Product substitution issue [Unknown]
